FAERS Safety Report 8484376-4 (Version None)
Quarter: 2012Q3

REPORT INFORMATION
  Report Type: 
  Country: None (occurrence: None)
  Receive Date: 20120703
  Receipt Date: 20120622
  Transmission Date: 20120928
  Serious: Yes (Other)
  Sender: FDA-Public Use
  Company Number: CA-JNJFOC-20120611905

PATIENT
  Sex: Female
  Weight: 71 kg

DRUGS (7)
  1. MURO-128 [Concomitant]
     Route: 065
  2. TYLENOL W/ CODEINE NO. 3 [Concomitant]
     Route: 065
  3. IMODIUM [Concomitant]
     Route: 065
  4. SYNTHROID [Concomitant]
     Route: 065
  5. ALL OTHER THERAPEUTIC PRODUCTS [Concomitant]
     Route: 065
  6. REMICADE [Suspect]
     Route: 042
     Dates: start: 20120525
  7. REMICADE [Suspect]
     Indication: PRODUCT USED FOR UNKNOWN INDICATION
     Route: 042
     Dates: start: 20120508

REACTIONS (2)
  - ONYCHOMYCOSIS [None]
  - DYSPNOEA [None]
